FAERS Safety Report 7673587-3 (Version None)
Quarter: 2011Q3

REPORT INFORMATION
  Report Type: 
  Country: None (occurrence: None)
  Receive Date: 20110810
  Receipt Date: 20101027
  Transmission Date: 20111222
  Serious: Yes (Other)
  Sender: FDA-Public Use
  Company Number: US-BAYER-US-SHR-03-014638

PATIENT
  Age: 56 Year
  Sex: Female
  Weight: 69.545 kg

DRUGS (3)
  1. BETASERON [Suspect]
     Indication: RELAPSING-REMITTING MULTIPLE SCLEROSIS
     Dosage: 8 MIU, QOD
     Route: 058
     Dates: start: 20030401, end: 20030901
  2. COPAXONE [Concomitant]
  3. TYSABRI [Concomitant]

REACTIONS (5)
  - FATIGUE [None]
  - HAEMOGLOBIN DECREASED [None]
  - BONE MARROW DISORDER [None]
  - HAEMATOCRIT DECREASED [None]
  - RED BLOOD CELL COUNT DECREASED [None]
